FAERS Safety Report 9789806 (Version 2)
Quarter: 2014Q1

REPORT INFORMATION
  Report Type: Report from Study
  Country: US (occurrence: US)
  Receive Date: 20131231
  Receipt Date: 20140118
  Transmission Date: 20141002
  Serious: Yes (Death)
  Sender: FDA-Public Use
  Company Number: US-ROCHE-1324184

PATIENT
  Age: 65 Year
  Sex: Female

DRUGS (1)
  1. AVASTIN [Suspect]
     Indication: CERVIX CARCINOMA
     Route: 065

REACTIONS (1)
  - Disease progression [Fatal]
